FAERS Safety Report 6832327-8 (Version None)
Quarter: 2010Q3

REPORT INFORMATION
  Report Type: 
  Country: None (occurrence: None)
  Receive Date: 20100707
  Receipt Date: 20100317
  Transmission Date: 20110219
  Serious: Yes (Hospitalization, Other)
  Sender: FDA-Public Use
  Company Number: 220001L10JPN

PATIENT
  Age: 14 Year
  Sex: Female

DRUGS (2)
  1. SOMATROPIN [Suspect]
     Indication: BODY HEIGHT BELOW NORMAL
  2. SOMATROPIN [Suspect]
     Indication: DWARFISM

REACTIONS (1)
  - OSTEONECROSIS [None]
